FAERS Safety Report 17739682 (Version 2)
Quarter: 2020Q2

REPORT INFORMATION
  Report Type: Spontaneous
  Country: CA (occurrence: CA)
  Receive Date: 20200504
  Receipt Date: 20200522
  Transmission Date: 20200714
  Serious: Yes (Disabling)
  Sender: FDA-Public Use
  Company Number: CA-ORION CORPORATION ORION PHARMA-TREX2019-5304

PATIENT
  Age: 60 Year
  Sex: Female

DRUGS (8)
  1. FOLVITE [Concomitant]
     Active Substance: FOLIC ACID
     Dosage: 5 MG TABLET,  3-4X/WEEKLY
     Route: 048
  2. METHOTREXATE (TRADE NAME UNKNOWN) [Suspect]
     Active Substance: METHOTREXATE
     Indication: RHEUMATOID ARTHRITIS
     Dosage: (2.5 MG TABLET TAKE 17.5 MG BY MOUTH ONE TIME PER WEEK)
     Route: 048
     Dates: start: 201904
  3. PREDNISONE. [Concomitant]
     Active Substance: PREDNISONE
     Indication: CONDITION AGGRAVATED
     Dosage: STARTED ON PREDNISONE 30 MG FOR 1 WEEK WITH A 5 MG REDUCTION TAPER FOR 6 WEEKS FOR CURRENT FLARE
     Route: 065
  4. PREDNISONE. [Concomitant]
     Active Substance: PREDNISONE
     Indication: CONDITION AGGRAVATED
     Route: 065
  5. ACTEMRA [Concomitant]
     Active Substance: TOCILIZUMAB
     Dosage: 162 MG /0.9 ML SYRINGE; INJECT 162 MG UNDER THE SKIN
     Route: 058
  6. NAPROXEN. [Concomitant]
     Active Substance: NAPROXEN
     Dosage: 500 MG TABLET; WITH MEALS
     Route: 048
  7. XELJANZ [Concomitant]
     Active Substance: TOFACITINIB CITRATE
     Indication: RHEUMATOID ARTHRITIS
     Route: 065
     Dates: start: 20190101
  8. NAPROSYN [Concomitant]
     Active Substance: NAPROXEN
     Route: 065

REACTIONS (13)
  - Osteoarthritis [Unknown]
  - Cervical radiculopathy [Recovering/Resolving]
  - Rheumatoid arthritis [Recovering/Resolving]
  - Crying [Unknown]
  - Feeling abnormal [Unknown]
  - Loss of personal independence in daily activities [Unknown]
  - Swelling [Unknown]
  - Inappropriate affect [Unknown]
  - Drug ineffective [Unknown]
  - Blood creatinine decreased [Unknown]
  - Insomnia [Unknown]
  - Weight increased [Unknown]
  - Mental disorder [Unknown]

NARRATIVE: CASE EVENT DATE: 20190606
